FAERS Safety Report 13502262 (Version 2)
Quarter: 2017Q2

REPORT INFORMATION
  Report Type: Spontaneous
  Country: JP (occurrence: JP)
  Receive Date: 20170502
  Receipt Date: 20170505
  Transmission Date: 20170830
  Serious: No
  Sender: FDA-Public Use
  Company Number: JP-SHIRE-JP201709612

PATIENT
  Age: 2 Decade
  Sex: Male

DRUGS (1)
  1. LIALDA [Suspect]
     Active Substance: MESALAMINE
     Indication: COLITIS ULCERATIVE
     Dosage: UNK (LIALDA TAB.1200MG), UNKNOWN
     Route: 048

REACTIONS (1)
  - Medication residue present [Unknown]
